FAERS Safety Report 19991677 (Version 3)
Quarter: 2022Q1

REPORT INFORMATION
  Report Type: Report from Study
  Country: IT (occurrence: IT)
  Receive Date: 20211025
  Receipt Date: 20220211
  Transmission Date: 20220424
  Serious: Yes (Hospitalization)
  Sender: FDA-Public Use
  Company Number: None

PATIENT
  Age: 32 Year
  Sex: Male

DRUGS (2)
  1. TAVOR (LORAZEPAM) [Interacting]
     Active Substance: LORAZEPAM
     Dosage: 1 MG, AS NEEDED
     Dates: start: 20210926
  2. PAROXETINE [Concomitant]
     Active Substance: PAROXETINE
     Dosage: 20 MG

REACTIONS (6)
  - Dyspnoea [Recovering/Resolving]
  - Alcohol interaction [Recovering/Resolving]
  - Chest pain [Recovering/Resolving]
  - Poisoning [Recovering/Resolving]
  - Somnolence [Recovering/Resolving]
  - Drug abuse [Recovering/Resolving]

NARRATIVE: CASE EVENT DATE: 20210926
